FAERS Safety Report 17481527 (Version 1)
Quarter: 2020Q1

REPORT INFORMATION
  Report Type: Report from Study
  Country: US (occurrence: US)
  Receive Date: 20200302
  Receipt Date: 20200302
  Transmission Date: 20200409
  Serious: Yes (Death, Other)
  Sender: FDA-Public Use
  Company Number: US-HBP-2019US019577

PATIENT
  Age: 73 Year
  Sex: Male

DRUGS (7)
  1. LIPITOR [Concomitant]
     Active Substance: ATORVASTATIN CALCIUM
  2. CLOBETASOL [Concomitant]
     Active Substance: CLOBETASOL
  3. TARGRETIN [Concomitant]
     Active Substance: BEXAROTENE
  4. LOVAZA [Concomitant]
     Active Substance: OMEGA-3-ACID ETHYL ESTERS
  5. SYNTHROID [Concomitant]
     Active Substance: LEVOTHYROXINE SODIUM
  6. VALCHLOR [Suspect]
     Active Substance: MECHLORETHAMINE
     Indication: CUTANEOUS T-CELL LYMPHOMA
     Dosage: THIN FILM, 2-3 TIMES A WEEK
     Route: 061
     Dates: start: 20141020
  7. TRICOR                             /00090101/ [Concomitant]
     Active Substance: ADENOSINE

REACTIONS (3)
  - Brain neoplasm malignant [Not Recovered/Not Resolved]
  - Off label use [Unknown]
  - Death [Fatal]

NARRATIVE: CASE EVENT DATE: 202001
